FAERS Safety Report 6093650-0 (Version None)
Quarter: 2009Q1

REPORT INFORMATION
  Report Type: 
  Country: None (occurrence: None)
  Receive Date: 20090226
  Receipt Date: 20090216
  Transmission Date: 20090719
  Serious: Yes (Other)
  Sender: FDA-Public Use
  Company Number: CN-PFIZER INC-2009171904

PATIENT

DRUGS (1)
  1. CEFOBID [Suspect]
     Indication: PNEUMONIA
     Route: 042
     Dates: start: 20050201, end: 20050301

REACTIONS (3)
  - EPIDERMOLYSIS BULLOSA [None]
  - IRITIS [None]
  - RETINAL DETACHMENT [None]
